FAERS Safety Report 14303861 (Version 1)
Quarter: 2017Q4

REPORT INFORMATION
  Report Type: Spontaneous
  Country: US (occurrence: US)
  Receive Date: 20171219
  Receipt Date: 20171219
  Transmission Date: 20180321
  Serious: Yes (Other)
  Sender: FDA-Public Use
  Company Number: US-OTSUKA-DJ20080244

PATIENT
  Age: 22 Year
  Sex: Female

DRUGS (1)
  1. ABILIFY [Suspect]
     Active Substance: ARIPIPRAZOLE
     Indication: BIPOLAR DISORDER
     Dosage: 30 MG, QD
     Route: 048
     Dates: start: 20070423

REACTIONS (4)
  - Maternal exposure during pregnancy [Recovered/Resolved]
  - Pregnancy [Recovered/Resolved]
  - Gallbladder operation [Unknown]
  - Stillbirth [Unknown]

NARRATIVE: CASE EVENT DATE: 20071215
